FAERS Safety Report 8973476 (Version 1)
Quarter: 2012Q4

REPORT INFORMATION
  Report Type: 
  Country: US (occurrence: US)
  Receive Date: 20121219
  Receipt Date: 20121219
  Transmission Date: 20130627
  Serious: Yes (Other)
  Sender: FDA-Public Use
  Company Number: US-JNJFOC-20121204787

PATIENT
  Age: 65 Year
  Sex: Female
  Weight: 54.43 kg

DRUGS (10)
  1. DOXORUBICIN HYDROCHLORIDE (DOXIL) [Suspect]
     Indication: OVARIAN CANCER
     Route: 042
     Dates: start: 20121128
  2. FENTANYL [Suspect]
     Indication: FIBROMYALGIA
     Route: 062
     Dates: start: 201104, end: 20121207
  3. FENTANYL [Suspect]
     Indication: FIBROMYALGIA
     Route: 062
     Dates: start: 20121207
  4. FENTANYL [Suspect]
     Indication: PAIN
     Route: 062
     Dates: start: 20121207
  5. FENTANYL [Suspect]
     Indication: PAIN
     Route: 062
     Dates: start: 201104, end: 20121207
  6. ONDANSETRON [Concomitant]
     Indication: NAUSEA
     Route: 065
     Dates: start: 20121129
  7. ALPRAZOLAM [Concomitant]
     Indication: ANXIETY
     Route: 048
     Dates: start: 201104
  8. EFFEXOR [Concomitant]
     Indication: ANTIDEPRESSANT THERAPY
     Dosage: Cut into fours
     Route: 048
  9. VITAMIN B [Concomitant]
     Indication: PRODUCT USED FOR UNKNOWN INDICATION
     Route: 065
  10. VITAMIN D [Concomitant]
     Indication: PRODUCT USED FOR UNKNOWN INDICATION
     Route: 065

REACTIONS (8)
  - Ascites [Unknown]
  - Dysstasia [Unknown]
  - Back pain [Not Recovered/Not Resolved]
  - Pain [Not Recovered/Not Resolved]
  - Abdominal distension [Unknown]
  - Abdominal pain lower [Not Recovered/Not Resolved]
  - Pain [Unknown]
  - Fatigue [Unknown]
